FAERS Safety Report 7363601-7 (Version None)
Quarter: 2011Q1

REPORT INFORMATION
  Report Type: 
  Country: None (occurrence: None)
  Receive Date: 20110321
  Receipt Date: 20110314
  Transmission Date: 20110831
  Serious: Yes (Other)
  Sender: FDA-Public Use
  Company Number: BR-PFIZER INC-2011056944

PATIENT
  Age: 44 Year
  Sex: Female

DRUGS (1)
  1. CELEBREX [Suspect]
     Indication: LIMB INJURY
     Dosage: 200 MG, 2X/DAY
     Route: 048
     Dates: start: 20090901, end: 20090901

REACTIONS (17)
  - EYE IRRITATION [None]
  - INCREASED UPPER AIRWAY SECRETION [None]
  - PAIN [None]
  - DYSSTASIA [None]
  - TACHYCARDIA [None]
  - ARTHROPATHY [None]
  - ASTHENIA [None]
  - JOINT SWELLING [None]
  - PRURITUS GENERALISED [None]
  - MOVEMENT DISORDER [None]
  - TONGUE DISCOLOURATION [None]
  - VISUAL ACUITY REDUCED [None]
  - GAIT DISTURBANCE [None]
  - DEPRESSION [None]
  - TONSILLAR DISORDER [None]
  - HYPERTROPHY OF TONGUE PAPILLAE [None]
  - DRY MOUTH [None]
